FAERS Safety Report 18251873 (Version 1)
Quarter: 2020Q3

REPORT INFORMATION
  Report Type: Other
  Country: CA (occurrence: CA)
  Receive Date: 20200910
  Receipt Date: 20200910
  Transmission Date: 20201103
  Serious: Yes (Hospitalization, Disabling, Other)
  Sender: FDA-Public Use
  Company Number: CA-APOTEX-2020AP009010

PATIENT

DRUGS (9)
  1. AA?CLOZAPINE [Suspect]
     Active Substance: CLOZAPINE
     Indication: OPPOSITIONAL DEFIANT DISORDER
     Dosage: 100 MG, Q.H.S.
     Route: 048
  2. PAROXETINE HYDROCHLORIDE. [Suspect]
     Active Substance: PAROXETINE HYDROCHLORIDE
     Indication: MAJOR DEPRESSION
     Dosage: 15 MILLIGRAM, QD
     Route: 048
  3. AA?CLOZAPINE [Suspect]
     Active Substance: CLOZAPINE
     Dosage: 50 MG, QD
     Route: 048
  4. CONCERTA [Suspect]
     Active Substance: METHYLPHENIDATE HYDROCHLORIDE
     Indication: ATTENTION DEFICIT HYPERACTIVITY DISORDER
     Dosage: 90 MG, QD
     Route: 048
     Dates: start: 201711
  5. PAXIL [Suspect]
     Active Substance: PAROXETINE HYDROCHLORIDE
     Indication: MAJOR DEPRESSION
     Dosage: 15 MG, QD
     Route: 048
     Dates: start: 2014
  6. LITHIUM. [Suspect]
     Active Substance: LITHIUM
     Indication: MAJOR DEPRESSION
     Dosage: 150 MG, Q.H.S.
     Route: 048
     Dates: start: 2014
  7. PROPRANOLOL [Suspect]
     Active Substance: PROPRANOLOL HYDROCHLORIDE
     Indication: TACHYCARDIA
     Dosage: 20 MG, BID
     Route: 048
     Dates: start: 201510, end: 202003
  8. AA?CLOZAPINE [Suspect]
     Active Substance: CLOZAPINE
     Dosage: 150 MG, QD
     Route: 048
  9. PAROXETINE. [Concomitant]
     Active Substance: PAROXETINE
     Indication: ANXIETY
     Dosage: 20 MG, UNK
     Route: 048

REACTIONS (8)
  - Intentional product use issue [Unknown]
  - Asthma [Unknown]
  - Respiratory disorder [Unknown]
  - Respiratory distress [Unknown]
  - Obesity [Unknown]
  - Contraindicated product administered [Unknown]
  - Viral infection [Unknown]
  - Off label use [Unknown]
